FAERS Safety Report 5914757-1 (Version None)
Quarter: 2008Q4

REPORT INFORMATION
  Report Type: 
  Country: None (occurrence: None)
  Receive Date: 20081010
  Receipt Date: 20081003
  Transmission Date: 20090506
  Serious: Yes (Other)
  Sender: FDA-Public Use
  Company Number: JP-BRISTOL-MYERS SQUIBB COMPANY-14361992

PATIENT
  Age: 60 Year
  Sex: Female

DRUGS (1)
  1. MITOMYCIN [Suspect]
     Indication: OVARIAN CANCER
     Route: 041
     Dates: start: 20050301, end: 20061013

REACTIONS (1)
  - HAEMOLYTIC ANAEMIA [None]
